FAERS Safety Report 9607428 (Version 1)
Quarter: 2013Q4

REPORT INFORMATION
  Report Type: Spontaneous
  Country: US (occurrence: None)
  Receive Date: 20131007
  Receipt Date: 20131007
  Transmission Date: 20140711
  Serious: Yes (Other)
  Sender: FDA-Public Use
  Company Number: None

PATIENT
  Age: 46 Year
  Sex: Female
  Weight: 68.49 kg

DRUGS (1)
  1. METHYLPREDNISOLONE 4MG DOSPAK 21^S CADISTA [Suspect]
     Indication: URTICARIA
     Dosage: 6 PILLS DAY 1, 5 PILLS DAY 2, FOUR TIMES DAILY TAKEN BY MOUTH
     Route: 048

REACTIONS (2)
  - Swelling face [None]
  - Eye swelling [None]
